FAERS Safety Report 17558903 (Version 10)
Quarter: 2024Q3

REPORT INFORMATION
  Report Type: Report from Study
  Country: CO (occurrence: CO)
  Receive Date: 20200319
  Receipt Date: 20240925
  Transmission Date: 20241017
  Serious: Yes (Hospitalization, Other)
  Sender: ROCHE
  Company Number: CO-002147023-PHHY2015CO047212

PATIENT
  Age: 73 Year
  Sex: Female
  Weight: 78.0 kg

DRUGS (18)
  1. XOLAIR [Suspect]
     Active Substance: OMALIZUMAB
     Indication: Asthma
     Route: 058
     Dates: end: 20141216
  2. XOLAIR [Suspect]
     Active Substance: OMALIZUMAB
     Route: 058
     Dates: start: 20130219, end: 20191111
  3. XOLAIR [Suspect]
     Active Substance: OMALIZUMAB
     Route: 058
     Dates: start: 20191111
  4. XOLAIR [Suspect]
     Active Substance: OMALIZUMAB
     Dosage: 600 MG, EVERY 4 WEEKS
     Route: 058
  5. XOLAIR [Suspect]
     Active Substance: OMALIZUMAB
     Route: 058
  6. XOLAIR [Suspect]
     Active Substance: OMALIZUMAB
     Route: 058
  7. XOLAIR [Suspect]
     Active Substance: OMALIZUMAB
     Route: 058
  8. MONTELUKAST [Concomitant]
     Active Substance: MONTELUKAST SODIUM
     Indication: Hypersensitivity
     Dosage: 10 MG, QD (4 YEARS AGO)
     Route: 048
  9. MONTELUKAST [Concomitant]
     Active Substance: MONTELUKAST SODIUM
  10. FORMOTEROL [Concomitant]
     Active Substance: FORMOTEROL
     Indication: Asthma
     Dosage: 12 MG, BID STARTED 5 YEARS AGO
     Route: 065
  11. BUDESONIDE [Concomitant]
     Active Substance: BUDESONIDE
     Indication: Asthma
     Dosage: 200 MG, UNK
     Route: 065
  12. FENOTEROL HYDROBROMIDE\IPRATROPIUM BROMIDE [Concomitant]
     Active Substance: FENOTEROL HYDROBROMIDE\IPRATROPIUM BROMIDE
     Indication: Product used for unknown indication
     Dosage: 3 TIMES A DAY
     Route: 065
  13. OMEPRAZOLE [Concomitant]
     Active Substance: OMEPRAZOLE
     Indication: Gastritis
     Dosage: 20 MG, QD
     Route: 065
     Dates: start: 202204
  14. ELIQUIS [Concomitant]
     Active Substance: APIXABAN
     Dosage: 5 MG, Q12H
     Route: 065
     Dates: start: 202204
  15. LEVOTHYROXINE [Concomitant]
     Active Substance: LEVOTHYROXINE\LEVOTHYROXINE SODIUM
     Indication: Thyroid disorder
     Dosage: 50 MG, QD (20 YEARS AGO)
     Route: 048
  16. AMLODIPINE [Concomitant]
     Active Substance: AMLODIPINE BESYLATE
     Indication: Hypertension
     Dosage: 5 MG, QD, 2 YEARS AGO)
     Route: 048
  17. LOSARTAN [Concomitant]
     Active Substance: LOSARTAN\LOSARTAN POTASSIUM
     Indication: Hypertension
     Dosage: 50 MG, Q12H (34 YEARS AGO)
     Route: 065
  18. CARVEDILOL [Concomitant]
     Active Substance: CARVEDILOL
     Indication: Product used for unknown indication
     Dosage: 6.25 MG, Q12H
     Dates: start: 202204

REACTIONS (21)
  - Thrombosis [Unknown]
  - Asphyxia [Recovered/Resolved]
  - Productive cough [Recovered/Resolved]
  - Back pain [Unknown]
  - Asphyxia [Recovered/Resolved with Sequelae]
  - Asthma [Unknown]
  - Diabetes mellitus [Unknown]
  - Productive cough [Recovered/Resolved with Sequelae]
  - Chest pain [Recovered/Resolved with Sequelae]
  - Pain [Recovered/Resolved with Sequelae]
  - Choking sensation [Unknown]
  - Malaise [Unknown]
  - Varicose vein [Unknown]
  - Inner ear disorder [Unknown]
  - Fatigue [Recovering/Resolving]
  - Respiratory tract congestion [Not Recovered/Not Resolved]
  - Productive cough [Not Recovered/Not Resolved]
  - Cough [Recovered/Resolved]
  - Cough [Recovered/Resolved with Sequelae]
  - Drug ineffective [Unknown]
  - Injection related reaction [Unknown]

NARRATIVE: CASE EVENT DATE: 20210101
